FAERS Safety Report 26106330 (Version 2)
Quarter: 2025Q4

REPORT INFORMATION
  Report Type: Spontaneous
  Country: US (occurrence: US)
  Receive Date: 20251201
  Receipt Date: 20251204
  Transmission Date: 20260118
  Serious: Yes (Hospitalization, Other)
  Sender: AUROBINDO
  Company Number: US-AUROBINDO-AUR-APL-2025-055651

PATIENT
  Age: 65 Year
  Sex: Male

DRUGS (4)
  1. HYDROCHLOROTHIAZIDE [Suspect]
     Active Substance: HYDROCHLOROTHIAZIDE
     Indication: Hypertension
     Dosage: 12.5 MG AND ONE CAPSULE BY MOUTH DAILY (ONCE A DAY)
     Dates: start: 20251008, end: 20251023
  2. OLMESARTAN [Concomitant]
     Active Substance: OLMESARTAN
     Indication: Hypertension
     Dosage: UNK
     Route: 065
  3. Flecarite 50 mg [Concomitant]
     Indication: Product used for unknown indication
     Dosage: UNK
     Route: 065
  4. Diltiazem 120 mg ER [Concomitant]
     Indication: Hypertension
     Dosage: UNK
     Route: 065

REACTIONS (5)
  - Drug ineffective [Unknown]
  - Blood pressure fluctuation [Not Recovered/Not Resolved]
  - Product substitution issue [Unknown]
  - Headache [Unknown]
  - Dizziness [Unknown]

NARRATIVE: CASE EVENT DATE: 20251008
